FAERS Safety Report 9204305 (Version 5)
Quarter: 2014Q2

REPORT INFORMATION
  Report Type: Spontaneous
  Country: US (occurrence: US)
  Receive Date: 20130402
  Receipt Date: 20140403
  Transmission Date: 20141212
  Serious: Yes (Hospitalization, Disabling, Other)
  Sender: FDA-Public Use
  Company Number: US-009507513-1303USA014024

PATIENT
  Sex: Female

DRUGS (7)
  1. FOSAMAX [Suspect]
     Indication: OSTEOPOROSIS
     Dosage: UNK UNK, QD
     Route: 048
     Dates: start: 199811
  2. FOSAMAX [Suspect]
     Dosage: 70 MG, QW
     Route: 048
     Dates: start: 20010514
  3. ACTONEL [Suspect]
     Indication: OSTEOPOROSIS
     Dosage: 5 MG, QD
     Route: 048
     Dates: start: 20001106, end: 20010514
  4. VITAMINS (UNSPECIFIED) [Concomitant]
     Dosage: UNK
     Dates: start: 1990
  5. XYZAL [Concomitant]
     Indication: HYPERSENSITIVITY
     Dosage: UNK
  6. ACULAR [Concomitant]
     Indication: HYPERSENSITIVITY
     Dosage: 2 GTT EACH EYE, QID
  7. ZYRTEC [Concomitant]
     Indication: HYPERSENSITIVITY
     Dosage: 10 MG, QD PRN
     Route: 048

REACTIONS (31)
  - Intramedullary rod insertion [Unknown]
  - Low turnover osteopathy [Not Recovered/Not Resolved]
  - Dupuytren^s contracture operation [Unknown]
  - Cholecystectomy [Unknown]
  - Femur fracture [Recovering/Resolving]
  - Fall [Unknown]
  - Large intestinal polypectomy [Unknown]
  - Type 2 diabetes mellitus [Unknown]
  - Dyslipidaemia [Unknown]
  - Syncope [Unknown]
  - Neuropathy peripheral [Unknown]
  - Bursitis [Unknown]
  - Macular degeneration [Unknown]
  - Carotid artery stenosis [Unknown]
  - Bursitis [Unknown]
  - Sciatica [Unknown]
  - Wrong technique in drug usage process [Unknown]
  - Hepatic steatosis [Unknown]
  - Biliary tract disorder [Unknown]
  - Rotator cuff syndrome [Unknown]
  - Skin lesion [Unknown]
  - Vertigo positional [Unknown]
  - Hypercholesterolaemia [Unknown]
  - Kyphosis [Unknown]
  - Drug intolerance [Unknown]
  - Herpes zoster [Recovering/Resolving]
  - Paraesthesia [Unknown]
  - Nausea [Unknown]
  - Asthenia [Unknown]
  - Gastritis [Recovered/Resolved]
  - Drug ineffective [Unknown]
